FAERS Safety Report 15525523 (Version 2)
Quarter: 2018Q4

REPORT INFORMATION
  Report Type: Spontaneous
  Country: US (occurrence: US)
  Receive Date: 20181018
  Receipt Date: 20181022
  Transmission Date: 20190205
  Serious: No
  Sender: FDA-Public Use
  Company Number: US-GLAXOSMITHKLINE-US2018187569

PATIENT
  Sex: Male

DRUGS (2)
  1. TUDORZA [Concomitant]
     Active Substance: ACLIDINIUM BROMIDE
  2. ADVAIR DISKUS [Suspect]
     Active Substance: FLUTICASONE PROPIONATE\SALMETEROL XINAFOATE
     Indication: PRODUCT USED FOR UNKNOWN INDICATION
     Dosage: 1 PUFF(S), BID
     Route: 055
     Dates: start: 2007

REACTIONS (1)
  - Candida infection [Recovered/Resolved]

NARRATIVE: CASE EVENT DATE: 2007
